FAERS Safety Report 6340342-6 (Version None)
Quarter: 2009Q3

REPORT INFORMATION
  Report Type: 
  Country: None (occurrence: None)
  Receive Date: 20090904
  Receipt Date: 20090828
  Transmission Date: 20100115
  Serious: Yes (Hospitalization)
  Sender: FDA-Public Use
  Company Number: DE-BIOGENIDEC-2009BI027114

PATIENT
  Age: 25 Year
  Sex: Female
  Weight: 44 kg

DRUGS (1)
  1. TYSABRI [Suspect]
     Indication: MULTIPLE SCLEROSIS
     Route: 042
     Dates: start: 20081215

REACTIONS (2)
  - COLITIS [None]
  - GASTROINTESTINAL INFLAMMATION [None]
